FAERS Safety Report 7267007-0 (Version None)
Quarter: 2011Q1

REPORT INFORMATION
  Report Type: 
  Country: None (occurrence: None)
  Receive Date: 20110201
  Receipt Date: 20110125
  Transmission Date: 20110831
  Serious: Yes (Death)
  Sender: FDA-Public Use
  Company Number: US-B.I. PHARMACEUTICALS,INC./RIDGEFIELD-2011-DE-00385GD

PATIENT
  Age: 86 Year
  Sex: Female

DRUGS (4)
  1. TELMISARTAN [Suspect]
     Route: 048
  2. ACETAMINOPHEN [Suspect]
     Route: 048
  3. NITROGLYCERIN [Suspect]
     Route: 048
  4. AMITRIPTYLINE HCL [Suspect]
     Route: 048

REACTIONS (1)
  - COMPLETED SUICIDE [None]
